FAERS Safety Report 20207285 (Version 2)
Quarter: 2021Q4

REPORT INFORMATION
  Report Type: Report from Study
  Country: US (occurrence: US)
  Receive Date: 20211220
  Receipt Date: 20211227
  Transmission Date: 20220303
  Serious: Yes (Hospitalization)
  Sender: FDA-Public Use
  Company Number: US-BAYER-2021A264739

PATIENT
  Age: 70 Year
  Sex: Female

DRUGS (2)
  1. STIVARGA [Suspect]
     Active Substance: REGORAFENIB
     Indication: Colorectal cancer
     Dosage: 80 MG, QD FOR 14 DAYS WITH 7 DAYS OFF
     Route: 048
     Dates: start: 20211202, end: 202112
  2. STIVARGA [Suspect]
     Active Substance: REGORAFENIB
     Indication: Colorectal cancer
     Dosage: 80 MG, QD FOR 2 WEEKS THEN 1 WEEK OFF
     Route: 048
     Dates: start: 20211214

REACTIONS (9)
  - Pneumonia bacterial [None]
  - Sepsis [None]
  - Diastolic hypertension [Recovered/Resolved]
  - Heart rate increased [Not Recovered/Not Resolved]
  - Cough [Not Recovered/Not Resolved]
  - Dyspnoea [None]
  - Nausea [Not Recovered/Not Resolved]
  - Thirst [None]
  - Off label use [Unknown]

NARRATIVE: CASE EVENT DATE: 20211202
